FAERS Safety Report 9333356 (Version 1)
Quarter: 2013Q2

REPORT INFORMATION
  Report Type: Spontaneous
  Country: US (occurrence: None)
  Receive Date: 20130604
  Receipt Date: 20130604
  Transmission Date: 20140414
  Serious: Yes (Hospitalization, Other)
  Sender: FDA-Public Use
  Company Number: FK201301722

PATIENT
  Age: 68 Year
  Sex: Male

DRUGS (13)
  1. FUROSEMIDE [Suspect]
     Indication: FLUID OVERLOAD
     Route: 042
  2. AMPICILLIN/SULBACTAM (UNACID /00917901/) [Concomitant]
  3. GENTAMICIN [Concomitant]
  4. ASPIRIN [Concomitant]
  5. HEPARIN [Concomitant]
  6. POTASSIUM CHLORIDE [Concomitant]
  7. LISINOPRIL [Concomitant]
  8. METOPROLOL TARTRATE [Concomitant]
  9. NITROGLYCERINE [Concomitant]
  10. SIMVASTATIN [Concomitant]
  11. MORPHINE [Concomitant]
  12. OMEPRAZOLE [Concomitant]
  13. TAMSULOSIN [Concomitant]

REACTIONS (12)
  - Metabolic alkalosis [None]
  - Hypokalaemia [None]
  - Pulmonary oedema [None]
  - Atrial fibrillation [None]
  - Aortic valve incompetence [None]
  - Mitral valve incompetence [None]
  - Asthenia [None]
  - Pneumonia [None]
  - Respiratory alkalosis [None]
  - Delirium [None]
  - Cardiac failure congestive [None]
  - Condition aggravated [None]
